FAERS Safety Report 16121930 (Version 1)
Quarter: 2019Q2

REPORT INFORMATION
  Report Type: Spontaneous
  Country: US (occurrence: US)
  Receive Date: 20190326
  Receipt Date: 20190326
  Transmission Date: 20190711
  Serious: No
  Sender: FDA-Public Use
  Company Number: None

PATIENT
  Age: 56 Year
  Sex: Female
  Weight: 76.05 kg

DRUGS (9)
  1. PROGESTERONE 100MG [Concomitant]
     Active Substance: PROGESTERONE
  2. FIORICET 50MG [Concomitant]
  3. ACETAMINOPHEN/40MG CAFFEINE [Concomitant]
  4. OMEPRAZOLE 20MG [Concomitant]
     Active Substance: OMEPRAZOLE
  5. STRADIOL [Concomitant]
  6. AIMOVIG [Suspect]
     Active Substance: ERENUMAB-AOOE
     Indication: MIGRAINE
     Dosage: ?          QUANTITY:1 INJECTION(S);OTHER FREQUENCY:EVERY 28 DAYS;OTHER ROUTE:INJECTED INTO FAT IN STOMACH?
     Dates: start: 20190205
  7. BUTALBITAL/325MG [Concomitant]
  8. AIMOVIG [Concomitant]
     Active Substance: ERENUMAB-AOOE
  9. VERAPAMIL 120MG [Concomitant]

REACTIONS (5)
  - Muscle spasms [None]
  - Constipation [None]
  - Neck pain [None]
  - Back pain [None]
  - Migraine [None]

NARRATIVE: CASE EVENT DATE: 20190205
